FAERS Safety Report 13001007 (Version 6)
Quarter: 2021Q3

REPORT INFORMATION
  Report Type: Report from Study
  Country: US (occurrence: US)
  Receive Date: 20161206
  Receipt Date: 20210912
  Transmission Date: 20211014
  Serious: Yes (Hospitalization)
  Sender: FDA-Public Use
  Company Number: US-ROCHE-1863241

PATIENT
  Age: 58 Year
  Sex: Female

DRUGS (33)
  1. DOCUSATE SODIUM. [Concomitant]
     Active Substance: DOCUSATE SODIUM
     Dates: start: 20161216
  2. ESOMEPRAZOL [Concomitant]
     Active Substance: ESOMEPRAZOLE
     Dates: start: 20170413
  3. ONGLYZA [Concomitant]
     Active Substance: SAXAGLIPTIN HYDROCHLORIDE
     Dates: start: 20140410
  4. ROSUVASTATIN. [Concomitant]
     Active Substance: ROSUVASTATIN
     Dates: start: 20081117
  5. RITUXIMAB. [Suspect]
     Active Substance: RITUXIMAB
     Indication: ANTI-NEUTROPHIL CYTOPLASMIC ANTIBODY POSITIVE VASCULITIS
     Dosage: LAST DOSE PROIOR TO SAE 25/AUG/2016.
     Route: 042
     Dates: start: 20140731
  6. CYMBALTA [Concomitant]
     Active Substance: DULOXETINE HYDROCHLORIDE
     Route: 048
     Dates: start: 20081117
  7. ESOMEPRAZOLE. [Concomitant]
     Active Substance: ESOMEPRAZOLE MAGNESIUM
     Route: 048
     Dates: start: 20161123
  8. PREDNISONE. [Concomitant]
     Active Substance: PREDNISONE
     Dates: start: 20161216
  9. SINGULAIR [Concomitant]
     Active Substance: MONTELUKAST SODIUM
     Route: 048
     Dates: start: 20141229
  10. SYNTHROID [Concomitant]
     Active Substance: LEVOTHYROXINE SODIUM
  11. ALBUTEROL SULFATE. [Concomitant]
     Active Substance: ALBUTEROL SULFATE
     Dates: start: 20150716
  12. HYDROMORPHONE [Concomitant]
     Active Substance: HYDROMORPHONE
     Dates: start: 20170505
  13. RITUXIMAB. [Suspect]
     Active Substance: RITUXIMAB
     Route: 042
     Dates: start: 20160808
  14. SAXAGLIPTIN [Concomitant]
     Active Substance: SAXAGLIPTIN
     Route: 048
     Dates: start: 20140410
  15. SENNOSIDE [Concomitant]
     Active Substance: SENNOSIDES
     Dates: start: 20170502
  16. ALBUTEROL. [Concomitant]
     Active Substance: ALBUTEROL
     Dosage: INHALE
     Route: 050
     Dates: start: 20161129
  17. BUDESONIDE. [Concomitant]
     Active Substance: BUDESONIDE
     Dosage: INHALE, 2ML
     Dates: start: 20150716
  18. CRESTOR [Concomitant]
     Active Substance: ROSUVASTATIN CALCIUM
     Route: 048
     Dates: start: 20081117
  19. PREDNISONE. [Concomitant]
     Active Substance: PREDNISONE
     Route: 048
     Dates: start: 20141229
  20. DOCUSATE SODIUM. [Concomitant]
     Active Substance: DOCUSATE SODIUM
     Dates: start: 20170502
  21. FAMOTIDINE. [Concomitant]
     Active Substance: FAMOTIDINE
     Route: 048
     Dates: start: 20161216
  22. SULFAMETHOXAZOLE/TRIMETHOPRIM [Concomitant]
     Active Substance: SULFAMETHOXAZOLE\TRIMETHOPRIM
     Dosage: 800?160MG
     Route: 048
     Dates: start: 20071015
  23. HYDRODIURIL [Concomitant]
     Active Substance: HYDROCHLOROTHIAZIDE
     Route: 048
     Dates: start: 20071015
  24. ROSUVASTATIN. [Concomitant]
     Active Substance: ROSUVASTATIN
     Dates: start: 20081117
  25. SENNA [Concomitant]
     Active Substance: SENNA LEAF\SENNOSIDES\SENNOSIDES A AND B
  26. DULOXETINE HCL [Concomitant]
     Active Substance: DULOXETINE HYDROCHLORIDE
     Dates: start: 20081111
  27. SYNTHROID [Concomitant]
     Active Substance: LEVOTHYROXINE SODIUM
     Dosage: ONCE PER WEEK FOR 4 WEEKS
     Route: 048
     Dates: start: 20071015
  28. MORPHINE [Concomitant]
     Active Substance: MORPHINE
     Dates: start: 20161216
  29. SINGULAIR [Concomitant]
     Active Substance: MONTELUKAST SODIUM
     Dates: start: 20141229
  30. ALBUTEROL. [Concomitant]
     Active Substance: ALBUTEROL
     Dosage: INHALE
     Route: 050
     Dates: start: 20161216
  31. ESOMEPRAZOLE. [Concomitant]
     Active Substance: ESOMEPRAZOLE MAGNESIUM
     Route: 048
     Dates: start: 20161216
  32. PREDNISONE. [Concomitant]
     Active Substance: PREDNISONE
     Route: 048
  33. PREDNISONE. [Concomitant]
     Active Substance: PREDNISONE
     Dates: start: 20170111

REACTIONS (3)
  - Metapneumovirus infection [Recovered/Resolved with Sequelae]
  - Pancreatitis [Recovered/Resolved]
  - Cholelithiasis [Recovered/Resolved]

NARRATIVE: CASE EVENT DATE: 20161129
